FAERS Safety Report 9384294 (Version 1)
Quarter: 2013Q3

REPORT INFORMATION
  Report Type: Spontaneous
  Country: FR (occurrence: FR)
  Receive Date: 20130705
  Receipt Date: 20130705
  Transmission Date: 20140515
  Serious: Yes (Hospitalization)
  Sender: FDA-Public Use
  Company Number: PHHY2013FR067442

PATIENT
  Age: 63 Year
  Sex: Female

DRUGS (8)
  1. FEMARA [Suspect]
     Dosage: 2.5 MG
     Route: 048
     Dates: start: 20130411, end: 20130525
  2. LEVOTHYROX [Concomitant]
     Dosage: 25 UG, UNK
     Dates: end: 20130525
  3. TRANDOLAPRIL [Concomitant]
     Dosage: UNK UKN, UNK
     Dates: end: 20130525
  4. CRESTOR [Concomitant]
     Dosage: 10 MG, UNK
     Dates: end: 20130525
  5. BISOPROLOL [Concomitant]
     Dosage: 10 MG, UNK
     Dates: end: 20130525
  6. ZOLPIDEM [Concomitant]
     Dosage: UNK UKN, UNK
     Dates: end: 20130525
  7. RILMENIDINE [Concomitant]
     Dosage: UNK UKN, UNK
     Dates: end: 20130525
  8. DOLIPRANE [Concomitant]
     Dosage: UNK UKN, UNK
     Dates: end: 20130525

REACTIONS (4)
  - Dermatitis exfoliative [Recovered/Resolved]
  - Eosinophilia [Recovered/Resolved]
  - Hepatic enzyme increased [Recovered/Resolved]
  - Pyrexia [Recovered/Resolved]
